FAERS Safety Report 7365482-4 (Version None)
Quarter: 2011Q1

REPORT INFORMATION
  Report Type: 
  Country: None (occurrence: None)
  Receive Date: 20110322
  Receipt Date: 20081001
  Transmission Date: 20110831
  Serious: Yes (Death, Hospitalization, Other)
  Sender: FDA-Public Use
  Company Number: US-BAYER-201038747NA

PATIENT
  Sex: Male
  Weight: 115 kg

DRUGS (12)
  1. MANNITOL [Concomitant]
     Dosage: 500 MG
     Route: 042
  2. CARDIOPLEGIA [Concomitant]
  3. LANTUS [Concomitant]
     Dosage: 60 UNITS EACH MORNING
     Route: 058
  4. AMIODARONE HCL [Concomitant]
     Indication: CORONARY ARTERY BYPASS
     Dosage: UNK
     Route: 042
     Dates: start: 20051205
  5. NITROGLYCERIN [Concomitant]
     Route: 042
  6. HEPARIN [Concomitant]
     Dosage: 34000 UNITS
     Route: 042
  7. METOPROLOL [Concomitant]
     Dosage: 50 MG DAILY
     Route: 048
  8. CRESTOR [Concomitant]
     Dosage: 10 MG DAILY
     Route: 048
  9. PROZAC [Concomitant]
     Dosage: 20 MG DAILY
     Route: 048
  10. ASPIRIN [Concomitant]
     Dosage: 325 MG DAILY
     Route: 048
  11. TRASYLOL [Suspect]
     Indication: CORONARY ARTERY BYPASS
     Route: 042
     Dates: start: 20051206
  12. RED BLOOD CELLS [Concomitant]
     Dosage: 2 UNITS
     Dates: start: 20051209

REACTIONS (9)
  - EMOTIONAL DISTRESS [None]
  - RENAL FAILURE [None]
  - PAIN [None]
  - ANXIETY [None]
  - CARDIAC FAILURE [None]
  - RESPIRATORY FAILURE [None]
  - CARDIAC FAILURE CONGESTIVE [None]
  - INJURY [None]
  - STRESS [None]
